FAERS Safety Report 7902118-5 (Version None)
Quarter: 2011Q4

REPORT INFORMATION
  Report Type: 
  Country: None (occurrence: None)
  Receive Date: 20111108
  Receipt Date: 20111031
  Transmission Date: 20120403
  Serious: Yes (Hospitalization)
  Sender: FDA-Public Use
  Company Number: US-BAYER-2011-106782

PATIENT
  Age: 29 Year
  Sex: Female

DRUGS (8)
  1. INTERFERON BETA-1A [Concomitant]
     Indication: PROGRESSIVE MULTIPLE SCLEROSIS
     Dosage: UNK
     Route: 030
  2. INTERFERON BETA-1B [Suspect]
     Indication: PROGRESSIVE MULTIPLE SCLEROSIS
     Dosage: UNK
     Route: 058
  3. GLATIRAMER ACETATE [Concomitant]
     Dosage: UNK
  4. MODAFINIL [Concomitant]
     Dosage: UNK
  5. CLONAZEPAM [Concomitant]
     Indication: FRUSTRATION
  6. LYRICA [Concomitant]
     Indication: PAIN
     Dosage: 300 MG, QD
     Route: 048
     Dates: start: 20070520
  7. CLONAZEPAM [Concomitant]
     Indication: MUSCLE SPASTICITY
     Dosage: 4 MG, QD
     Route: 048
     Dates: start: 20011024
  8. LYRICA [Concomitant]

REACTIONS (1)
  - MULTIPLE SCLEROSIS [None]
